FAERS Safety Report 17300007 (Version 1)
Quarter: 2020Q1

REPORT INFORMATION
  Report Type: Spontaneous
  Country: US (occurrence: US)
  Receive Date: 20200122
  Receipt Date: 20200122
  Transmission Date: 20200409
  Serious: No
  Sender: FDA-Public Use
  Company Number: US-ALLERGAN-1925429US

PATIENT
  Sex: Male

DRUGS (3)
  1. RESTASIS [Suspect]
     Active Substance: CYCLOSPORINE
     Indication: EYE IRRITATION
  2. RESTASIS [Suspect]
     Active Substance: CYCLOSPORINE
     Indication: DRY EYE
     Dosage: 2 GTT, BID
     Route: 047
  3. OASIS TEARS [Concomitant]
     Active Substance: GLYCERIN
     Indication: DRY EYE

REACTIONS (7)
  - Eye irritation [Unknown]
  - Off label use [Unknown]
  - Periorbital swelling [Unknown]
  - Photophobia [Unknown]
  - Eye pain [Unknown]
  - Eye discharge [Unknown]
  - Drug ineffective [Unknown]
